FAERS Safety Report 13362907 (Version 1)
Quarter: 2017Q1

REPORT INFORMATION
  Report Type: Spontaneous
  Country: GB (occurrence: GB)
  Receive Date: 20170323
  Receipt Date: 20170323
  Transmission Date: 20170429
  Serious: Yes (Other)
  Sender: FDA-Public Use
  Company Number: GB-TEVA-751092ROM

PATIENT
  Age: 73 Year
  Sex: Male

DRUGS (3)
  1. LINEZOLID. [Suspect]
     Active Substance: LINEZOLID
     Indication: ENTEROCOCCAL INFECTION
     Dosage: 600 MG AT 12 HOUR INTERVALS
     Route: 048
  2. LINEZOLID. [Suspect]
     Active Substance: LINEZOLID
     Indication: ENTEROCOCCAL INFECTION
     Dosage: 250 ML (600 MG LINEZOLID DILUTED IN 300 ML OF NORMAL SALINE)
     Route: 042
  3. LINEZOLID. [Suspect]
     Active Substance: LINEZOLID
     Indication: ENTEROCOCCAL INFECTION
     Dosage: 50 ML (600 MG LINEZOLID DILUTED IN 300 ML OF NORMAL SALINE)
     Route: 050

REACTIONS (1)
  - Bone marrow failure [Unknown]
